FAERS Safety Report 7140347-1 (Version None)
Quarter: 2010Q4

REPORT INFORMATION
  Report Type: 
  Country: None (occurrence: None)
  Receive Date: 20101207
  Receipt Date: 20070907
  Transmission Date: 20110411
  Serious: No
  Sender: FDA-Public Use
  Company Number: 2007BI019371

PATIENT
  Age: 44 Year
  Sex: Female

DRUGS (2)
  1. TYSABRI [Suspect]
     Indication: MULTIPLE SCLEROSIS
     Route: 042
  2. TYSABRI [Suspect]
     Route: 042
     Dates: start: 20070810

REACTIONS (7)
  - HERPES ZOSTER [None]
  - MUSCULOSKELETAL PAIN [None]
  - PAIN [None]
  - PAIN IN EXTREMITY [None]
  - RAYNAUD'S PHENOMENON [None]
  - SINUSITIS [None]
  - URINARY TRACT INFECTION [None]
